FAERS Safety Report 8792806 (Version 1)
Quarter: 2012Q4

REPORT INFORMATION
  Report Type: 
  Country: US (occurrence: US)
  Receive Date: 20120918
  Receipt Date: 20120918
  Transmission Date: 20130627
  Serious: Yes (Other)
  Sender: FDA-Public Use
  Company Number: US-009507513-1209USA005939

PATIENT

DRUGS (6)
  1. SAPHRIS [Suspect]
     Route: 060
  2. CLOZAPINE [Suspect]
  3. ALPRAZOLAM [Concomitant]
  4. MIDODRINE HYDROCHLORIDE [Concomitant]
  5. CYMBALTA [Concomitant]
  6. ACIPHEX [Concomitant]

REACTIONS (2)
  - Granulocytopenia [Unknown]
  - Leukopenia [Unknown]
